FAERS Safety Report 8828101 (Version 1)
Quarter: 2012Q4

REPORT INFORMATION
  Report Type: 
  Country: JP (occurrence: JP)
  Receive Date: 20121008
  Receipt Date: 20121008
  Transmission Date: 20130627
  Serious: Yes (Other)
  Sender: FDA-Public Use
  Company Number: PHHY2012JP066380

PATIENT
  Age: 65 Year
  Sex: Male

DRUGS (2)
  1. TEGRETOL [Suspect]
     Indication: CONVULSION
     Route: 048
  2. ZONISAMIDE [Concomitant]
     Route: 048

REACTIONS (2)
  - Micturition frequency decreased [Not Recovered/Not Resolved]
  - Dysuria [Not Recovered/Not Resolved]
